FAERS Safety Report 13592043 (Version 2)
Quarter: 2017Q2

REPORT INFORMATION
  Report Type: Spontaneous
  Country: HR (occurrence: HR)
  Receive Date: 20170530
  Receipt Date: 20170609
  Transmission Date: 20170830
  Serious: Yes (Other)
  Sender: FDA-Public Use
  Company Number: HR-BAYER-2017-096637

PATIENT
  Sex: Female

DRUGS (1)
  1. NEXAVAR [Suspect]
     Active Substance: SORAFENIB
     Indication: HEPATOCELLULAR CARCINOMA
     Dosage: DAILY DOSE 800 MG
     Dates: start: 201512, end: 201612

REACTIONS (11)
  - Skin exfoliation [None]
  - Musculoskeletal chest pain [None]
  - Diarrhoea [Recovering/Resolving]
  - Skin reaction [Not Recovered/Not Resolved]
  - Metastases to bone [None]
  - Erythema [None]
  - Hepatocellular carcinoma [None]
  - Pain [Recovered/Resolved with Sequelae]
  - Musculoskeletal pain [None]
  - Fatigue [None]
  - Chest pain [None]

NARRATIVE: CASE EVENT DATE: 201601
